FAERS Safety Report 8477796-5 (Version None)
Quarter: 2012Q2

REPORT INFORMATION
  Report Type: 
  Country: None (occurrence: None)
  Receive Date: 20120629
  Receipt Date: 20120622
  Transmission Date: 20120825
  Serious: Yes (Hospitalization)
  Sender: FDA-Public Use
  Company Number: US-BAYER-2012-015875

PATIENT
  Age: 25 Year
  Sex: Female
  Weight: 52.154 kg

DRUGS (4)
  1. PROMETHAZINE [Concomitant]
     Dosage: 25 MG, UNK
     Dates: start: 20100220
  2. YASMIN [Suspect]
     Dosage: UNK
     Dates: start: 20070901, end: 20100501
  3. CIPROFLOXACIN HCL [Concomitant]
     Dosage: 500 MG, UNK
     Dates: start: 20100220
  4. DROSPIRENONE AND ETHINYL ESTRADIOL [Suspect]
     Dosage: UNK
     Dates: start: 20070901, end: 20100501

REACTIONS (4)
  - GALLBLADDER DISORDER [None]
  - PAIN [None]
  - MENTAL DISORDER [None]
  - CHOLECYSTITIS CHRONIC [None]
